FAERS Safety Report 8168933 (Version 3)
Quarter: 2012Q4

REPORT INFORMATION
  Report Type: 
  Country: US (occurrence: US)
  Receive Date: 20111005
  Receipt Date: 20120911
  Transmission Date: 20130627
  Serious: Yes (Hospitalization, Other)
  Sender: FDA-Public Use
  Company Number: PHHO2011US16328

PATIENT
  Age: 63 Year
  Sex: Male
  Weight: 86.62 kg

DRUGS (4)
  1. TRAMADOL [Suspect]
     Indication: BACK PAIN
     Dosage: 50 mg, PRN
     Route: 048
     Dates: start: 20110710
  2. VANCOMYCIN [Suspect]
     Route: 042
  3. QVA149 [Suspect]
     Indication: CHRONIC OBSTRUCTIVE PULMONARY DISEASE
     Dosage: 1 DF (110/50 ug), QD
     Dates: start: 20101117, end: 20110923
  4. OXYGEN [Concomitant]
     Indication: SLEEP APNOEA SYNDROME
     Dosage: 2 lpm, QHS
     Dates: start: 20080314

REACTIONS (6)
  - Spinal osteoarthritis [Recovering/Resolving]
  - Concomitant disease progression [Recovering/Resolving]
  - Post procedural complication [Recovering/Resolving]
  - Acute respiratory distress syndrome [Recovered/Resolved]
  - Condition aggravated [Recovered/Resolved]
  - Delirium [Unknown]
